FAERS Safety Report 16485839 (Version 1)
Quarter: 2019Q2

REPORT INFORMATION
  Report Type: Spontaneous
  Country: None (occurrence: US)
  Receive Date: 20190627
  Receipt Date: 20190627
  Transmission Date: 20190711
  Serious: No
  Sender: FDA-Public Use
  Company Number: US-MEDAC PHARMA, INC.-2069721

PATIENT
  Age: 66 Year
  Sex: Female
  Weight: 63.64 kg

DRUGS (1)
  1. RASUVO [Suspect]
     Active Substance: METHOTREXATE SODIUM
     Route: 051

REACTIONS (3)
  - Accidental exposure to product [Recovered/Resolved]
  - Wrong technique in product usage process [Recovered/Resolved]
  - No adverse event [None]
